FAERS Safety Report 24208371 (Version 1)
Quarter: 2024Q3

REPORT INFORMATION
  Report Type: Report from Study
  Country: US (occurrence: US)
  Receive Date: 20240814
  Receipt Date: 20240814
  Transmission Date: 20241017
  Serious: Yes (Other)
  Sender: ABBVIE
  Company Number: US-ABBVIE-5875784

PATIENT
  Sex: Female

DRUGS (1)
  1. IMBRUVICA [Suspect]
     Active Substance: IBRUTINIB
     Indication: Waldenstrom^s macroglobulinaemia
     Route: 048
     Dates: start: 202406

REACTIONS (4)
  - Non-Hodgkin^s lymphoma [Unknown]
  - Off label use [Unknown]
  - Cold type haemolytic anaemia [Unknown]
  - Brain fog [Unknown]

NARRATIVE: CASE EVENT DATE: 20240101
